FAERS Safety Report 9236476 (Version 1)
Quarter: 2013Q2

REPORT INFORMATION
  Report Type: Spontaneous
  Country: IT (occurrence: IT)
  Receive Date: 20130417
  Receipt Date: 20130417
  Transmission Date: 20140414
  Serious: Yes (Hospitalization)
  Sender: FDA-Public Use
  Company Number: IT-TEVA-397427ISR

PATIENT
  Age: 67 Year
  Sex: Female

DRUGS (2)
  1. OXALIPLATINO [Suspect]
     Indication: COLON CANCER
     Route: 042
     Dates: start: 20130405, end: 20130405
  2. CAPECITABINE [Concomitant]

REACTIONS (5)
  - Dyspnoea [Recovering/Resolving]
  - Tongue oedema [Recovering/Resolving]
  - Bronchospasm [Recovering/Resolving]
  - Muscle spasms [Recovering/Resolving]
  - Muscle spasms [Recovering/Resolving]
